FAERS Safety Report 20467344 (Version 1)
Quarter: 2022Q1

REPORT INFORMATION
  Report Type: Spontaneous
  Country: CO (occurrence: CO)
  Receive Date: 20220214
  Receipt Date: 20220214
  Transmission Date: 20220423
  Serious: Yes (Other)
  Sender: FDA-Public Use
  Company Number: CO-AUROBINDO-AUR-APL-2022-004440

PATIENT
  Age: 87 Year
  Sex: Female

DRUGS (6)
  1. AMPICILLIN SODIUM\SULBACTAM SODIUM [Suspect]
     Active Substance: AMPICILLIN SODIUM\SULBACTAM SODIUM
     Indication: Klebsiella infection
     Dosage: 1.5 GRAM, EVERY 6 HOURS
     Route: 065
  2. PROBIOTICS NOS [Concomitant]
     Active Substance: PROBIOTICS NOS
     Indication: Diarrhoea
     Dosage: UNK
     Route: 065
  3. BACILLUS SUBTILIS [Concomitant]
     Active Substance: BACILLUS SUBTILIS
     Indication: Diarrhoea
     Dosage: (2 BILLION/5 ML B. CLAUSII SPORE SUSPENSION, STRAINS:
     Route: 065
  4. CEFEPIME [Concomitant]
     Active Substance: CEFEPIME HYDROCHLORIDE
     Indication: Sepsis
     Dosage: 1 GRAM, TWO TIMES A DAY
     Route: 065
  5. CEPHALOTHIN [Concomitant]
     Active Substance: CEPHALOTHIN
     Indication: Diarrhoea
     Dosage: 1 GRAM/ 6 HOUR
  6. VANCOMYCIN [Concomitant]
     Active Substance: VANCOMYCIN
     Indication: Sepsis
     Dosage: 1 GRAM, TWO TIMES A DAY
     Route: 042

REACTIONS (1)
  - Drug resistance [Unknown]
